FAERS Safety Report 14262179 (Version 1)
Quarter: 2017Q4

REPORT INFORMATION
  Report Type: Spontaneous
  Country: US (occurrence: US)
  Receive Date: 20171208
  Receipt Date: 20171208
  Transmission Date: 20180321
  Serious: Yes (Life-Threatening, Hospitalization, Other)
  Sender: FDA-Public Use
  Company Number: US-CIPLA LTD.-2017US19686

PATIENT

DRUGS (22)
  1. DEXTROAMPHETAMINE. [Concomitant]
     Active Substance: DEXTROAMPHETAMINE
     Indication: BIPOLAR DISORDER
     Dosage: UNK
     Route: 065
  2. AMPHETAMINE LISDEXAMFETAMINE [Concomitant]
     Indication: BIPOLAR DISORDER
     Dosage: UNK
     Route: 065
  3. FLUOXETINE [Concomitant]
     Active Substance: FLUOXETINE HYDROCHLORIDE
     Indication: BIPOLAR DISORDER
     Dosage: UNK
     Route: 065
  4. VALPROIC ACID. [Suspect]
     Active Substance: VALPROIC ACID
     Indication: SEIZURE
     Dosage: 375 MG, QD, Q AM
     Route: 065
  5. METHYLPHENIDATE HYDROCHLORIDE. [Suspect]
     Active Substance: METHYLPHENIDATE HYDROCHLORIDE
     Indication: BIPOLAR DISORDER
     Dosage: 36 MG, QD, ONCE IN MORNING Q. A.M
     Route: 065
  6. SERTRALINE [Concomitant]
     Active Substance: SERTRALINE HYDROCHLORIDE
     Indication: BIPOLAR DISORDER
     Dosage: UNK
     Route: 065
  7. PAROXETINE. [Interacting]
     Active Substance: PAROXETINE
     Indication: BIPOLAR DISORDER
     Dosage: 40 MG, QD, Q AM
     Route: 065
  8. CLONIDINE. [Concomitant]
     Active Substance: CLONIDINE
     Indication: BIPOLAR DISORDER
     Dosage: UNK
     Route: 065
  9. OXCARBAZEPINE. [Concomitant]
     Active Substance: OXCARBAZEPINE
     Indication: BIPOLAR DISORDER
     Dosage: UNK
     Route: 065
  10. TRAZODONE [Concomitant]
     Active Substance: TRAZODONE HYDROCHLORIDE
     Indication: BIPOLAR DISORDER
     Dosage: UNK
     Route: 065
  11. LORAZEPAM. [Concomitant]
     Active Substance: LORAZEPAM
     Indication: BIPOLAR DISORDER
     Dosage: UNK
     Route: 065
  12. MELATONIN [Suspect]
     Active Substance: MELATONIN
     Indication: BIPOLAR DISORDER
     Dosage: 5 MG, QD, AT BEDTIME AS NEEDED
     Route: 065
  13. CLONAZEPAM. [Concomitant]
     Active Substance: CLONAZEPAM
     Indication: BIPOLAR DISORDER
     Dosage: UNK
     Route: 065
  14. RISPERIDONE. [Interacting]
     Active Substance: RISPERIDONE
     Indication: BIPOLAR DISORDER
     Dosage: 0.5 MG, BID
     Route: 065
  15. BUPROPION. [Suspect]
     Active Substance: BUPROPION
     Indication: BIPOLAR DISORDER
     Dosage: UNK
     Route: 065
  16. VALPROIC ACID. [Suspect]
     Active Substance: VALPROIC ACID
     Dosage: 500 MG, QD, AT BEDTIME
     Route: 065
  17. PRAMIPEXOLE. [Suspect]
     Active Substance: PRAMIPEXOLE
     Indication: BIPOLAR DISORDER
     Dosage: 0.125 MG, QD, AT BEDTIME
     Route: 065
  18. RISPERIDONE. [Interacting]
     Active Substance: RISPERIDONE
     Dosage: 0.5 MG, QD, Q AM
     Route: 065
  19. RISPERIDONE. [Interacting]
     Active Substance: RISPERIDONE
     Dosage: 1 MG, QD, AT BEDTIME
     Route: 065
  20. GUANFACINE. [Concomitant]
     Active Substance: GUANFACINE
     Indication: BIPOLAR DISORDER
     Dosage: UNK
     Route: 065
  21. ATOMOXETINE. [Concomitant]
     Active Substance: ATOMOXETINE HYDROCHLORIDE
     Indication: BIPOLAR DISORDER
     Dosage: UNK
     Route: 065
  22. BUSPIRONE [Concomitant]
     Active Substance: BUSPIRONE HYDROCHLORIDE
     Indication: BIPOLAR DISORDER
     Dosage: UNK
     Route: 065

REACTIONS (3)
  - Seizure [Unknown]
  - Drug interaction [Unknown]
  - Neuroleptic malignant syndrome [Recovering/Resolving]
